APPROVED DRUG PRODUCT: CABERGOLINE
Active Ingredient: CABERGOLINE
Strength: 0.5MG
Dosage Form/Route: TABLET;ORAL
Application: A204735 | Product #001 | TE Code: AB
Applicant: INGENUS PHARMACEUTICALS LLC
Approved: Aug 1, 2018 | RLD: No | RS: Yes | Type: RX